FAERS Safety Report 10421844 (Version 3)
Quarter: 2014Q3

REPORT INFORMATION
  Report Type: Spontaneous
  Country: IT (occurrence: IT)
  Receive Date: 20140901
  Receipt Date: 20140929
  Transmission Date: 20150326
  Serious: Yes (Hospitalization)
  Sender: FDA-Public Use
  Company Number: IT-JNJFOC-20140818936

PATIENT
  Age: 72 Year
  Sex: Male

DRUGS (4)
  1. DOXORUBICIN [Suspect]
     Active Substance: DOXORUBICIN
     Indication: NON-HODGKIN^S LYMPHOMA
     Route: 042
     Dates: start: 20140522, end: 20140522
  2. VINBLASTINE SULPHATE [Suspect]
     Active Substance: VINBLASTINE SULFATE
     Indication: NON-HODGKIN^S LYMPHOMA
     Route: 065
     Dates: start: 20140522, end: 20140522
  3. DACARBAZINE. [Suspect]
     Active Substance: DACARBAZINE
     Indication: NON-HODGKIN^S LYMPHOMA
     Route: 065
     Dates: start: 20140522, end: 20140522
  4. BLEOMYCIN SULPHATE [Suspect]
     Active Substance: BLEOMYCIN SULFATE
     Indication: NON-HODGKIN^S LYMPHOMA
     Route: 065
     Dates: start: 20140522, end: 20140522

REACTIONS (8)
  - Hyponatraemia [Recovering/Resolving]
  - General physical health deterioration [Unknown]
  - Hypercreatinaemia [Recovering/Resolving]
  - Neutropenia [Recovering/Resolving]
  - Hyperglycaemia [Recovering/Resolving]
  - Lymphopenia [Recovering/Resolving]
  - Thrombocytopenia [Recovering/Resolving]
  - Convulsion [Unknown]

NARRATIVE: CASE EVENT DATE: 20140531
